FAERS Safety Report 8315005-8 (Version None)
Quarter: 2012Q2

REPORT INFORMATION
  Report Type: 
  Country: None (occurrence: None)
  Receive Date: 20120426
  Receipt Date: 20120229
  Transmission Date: 20120825
  Serious: No
  Sender: FDA-Public Use
  Company Number: US-MUTUAL PHARMACEUTICAL COMPANY, INC.-CLCY20120038

PATIENT
  Sex: Male
  Weight: 131.66 kg

DRUGS (4)
  1. HYDROCODONE BITARTRATE AND ACETAMINOPHEN [Concomitant]
     Indication: GOUT
     Route: 048
  2. LIVALO [Concomitant]
     Indication: BLOOD CHOLESTEROL INCREASED
     Route: 048
  3. SULFAMETHOXAZOLE AND TRIMETHOPRIM [Concomitant]
     Indication: WOUND
     Route: 048
     Dates: start: 20120201
  4. COLCRYS [Suspect]
     Indication: GOUT
     Route: 048
     Dates: start: 20120228

REACTIONS (1)
  - DRUG INEFFECTIVE [None]
